FAERS Safety Report 5769129-X (Version None)
Quarter: 2008Q2

REPORT INFORMATION
  Report Type: 
  Country: None (occurrence: None)
  Receive Date: 20080612
  Receipt Date: 20080319
  Transmission Date: 20081010
  Serious: No
  Sender: FDA-Public Use
  Company Number: US-ABBOTT-08P-163-0443787-00

PATIENT
  Sex: Female

DRUGS (2)
  1. HUMIRA [Suspect]
     Indication: RHEUMATOID ARTHRITIS
     Route: 058
     Dates: start: 20070813
  2. ZOLAIR INJECTION [Concomitant]
     Indication: DRUG USE FOR UNKNOWN INDICATION

REACTIONS (7)
  - BLISTER [None]
  - ERYTHEMA [None]
  - FUNGAL SKIN INFECTION [None]
  - RASH MACULAR [None]
  - SKIN DISORDER [None]
  - SKIN EXFOLIATION [None]
  - URTICARIA [None]
